FAERS Safety Report 18800513 (Version 1)
Quarter: 2021Q1

REPORT INFORMATION
  Report Type: Spontaneous
  Country: FR (occurrence: FR)
  Receive Date: 20210128
  Receipt Date: 20210128
  Transmission Date: 20210419
  Serious: Yes (Life-Threatening)
  Sender: FDA-Public Use
  Company Number: FR-MYLANLABS-2021M1005015

PATIENT
  Age: 58 Year
  Sex: Female
  Weight: 52 kg

DRUGS (2)
  1. REMIFENTANIL MYLAN [Suspect]
     Active Substance: REMIFENTANIL
     Indication: INDUCTION OF ANAESTHESIA
     Dosage: UNK
     Route: 041
     Dates: start: 20191001, end: 20191001
  2. PROPOFOL LIPURO [Suspect]
     Active Substance: PROPOFOL
     Indication: INDUCTION OF ANAESTHESIA
     Dosage: UNK
     Route: 041
     Dates: start: 20191001, end: 20191001

REACTIONS (4)
  - Bradycardia [Recovered/Resolved]
  - Rash [Recovered/Resolved]
  - Cardiac arrest [Recovered/Resolved]
  - Type I hypersensitivity [Recovered/Resolved]

NARRATIVE: CASE EVENT DATE: 20191001
